FAERS Safety Report 11509520 (Version 1)
Quarter: 2015Q3

REPORT INFORMATION
  Report Type: Spontaneous
  Country: US (occurrence: US)
  Receive Date: 20150915
  Receipt Date: 20150915
  Transmission Date: 20151125
  Serious: No
  Sender: FDA-Public Use
  Company Number: US-MARATHON PHARMACEUTICALS-2014MAR00019

PATIENT

DRUGS (1)
  1. ZINGO [Suspect]
     Active Substance: LIDOCAINE HYDROCHLORIDE

REACTIONS (2)
  - Contusion [Unknown]
  - Drug ineffective [Unknown]
